FAERS Safety Report 13648647 (Version 1)
Quarter: 2017Q2

REPORT INFORMATION
  Report Type: Spontaneous
  Country: SI (occurrence: SI)
  Receive Date: 20170613
  Receipt Date: 20170613
  Transmission Date: 20170830
  Serious: Yes (Disabling)
  Sender: FDA-Public Use
  Company Number: SI-ALLERGAN-1724241US

PATIENT
  Age: 90 Year
  Sex: Male

DRUGS (1)
  1. CEFTAROLINE FOSAMIL - BP [Suspect]
     Active Substance: CEFTAROLINE FOSAMIL
     Indication: PROSTATITIS
     Dosage: UNK, BID
     Route: 042
     Dates: start: 2015, end: 2015

REACTIONS (3)
  - Abasia [Unknown]
  - Somnolence [Recovered/Resolved]
  - Therapeutic response decreased [Unknown]
